FAERS Safety Report 8271951 (Version 2)
Quarter: 2013Q4

REPORT INFORMATION
  Report Type: Spontaneous
  Country: AU (occurrence: AU)
  Receive Date: 20111202
  Receipt Date: 20131127
  Transmission Date: 20140711
  Serious: Yes (Hospitalization, Other)
  Sender: FDA-Public Use
  Company Number: AU-PFIZER INC-2011291134

PATIENT
  Age: 54 Year
  Sex: Male

DRUGS (3)
  1. LYRICA [Suspect]
     Indication: PAIN
     Route: 048
  2. EFEXOR [Concomitant]
  3. VALIUM [Concomitant]

REACTIONS (4)
  - Convulsion [Recovering/Resolving]
  - Loss of consciousness [Recovering/Resolving]
  - Road traffic accident [Recovering/Resolving]
  - Muscular weakness [Recovering/Resolving]
